FAERS Safety Report 25817997 (Version 1)
Quarter: 2025Q3

REPORT INFORMATION
  Report Type: Spontaneous
  Country: US (occurrence: US)
  Receive Date: 20250918
  Receipt Date: 20250918
  Transmission Date: 20251020
  Serious: Yes (Other)
  Sender: GLAND PHARMA LTD
  Company Number: US-GLANDPHARMA-US-2025GLNSPO01794

PATIENT
  Sex: Female
  Weight: 75 kg

DRUGS (2)
  1. CARBOPLATIN [Suspect]
     Active Substance: CARBOPLATIN
     Indication: Oesophageal adenocarcinoma stage IV
     Route: 065
     Dates: start: 202504, end: 20250521
  2. TAXOL [Suspect]
     Active Substance: PACLITAXEL
     Indication: Oesophageal adenocarcinoma stage IV
     Route: 065
     Dates: start: 202504, end: 20250521

REACTIONS (7)
  - Neuropathy peripheral [Unknown]
  - Brain fog [Unknown]
  - Weight decreased [Unknown]
  - Toxicity to various agents [Unknown]
  - Alopecia [Unknown]
  - Asthenia [Unknown]
  - Product use in unapproved indication [Unknown]

NARRATIVE: CASE EVENT DATE: 20250101
